FAERS Safety Report 8208966-9 (Version None)
Quarter: 2012Q1

REPORT INFORMATION
  Report Type: 
  Country: None (occurrence: None)
  Receive Date: 20120314
  Receipt Date: 20120308
  Transmission Date: 20120608
  Serious: Yes (Other)
  Sender: FDA-Public Use
  Company Number: BR-PFIZER INC-2012024600

PATIENT
  Age: 60 Year
  Sex: Female

DRUGS (1)
  1. SUTENT [Suspect]
     Indication: METASTATIC RENAL CELL CARCINOMA
     Dosage: 50 MG, 1X/DAY (CYCLE 4 FOR 2)
     Route: 048
     Dates: start: 20120105, end: 20120223

REACTIONS (5)
  - HYPERTENSIVE CRISIS [None]
  - HYPERTENSION [None]
  - ORAL DISORDER [None]
  - PHARYNGITIS [None]
  - GLOSSODYNIA [None]
